FAERS Safety Report 6009986-5 (Version None)
Quarter: 2008Q4

REPORT INFORMATION
  Report Type: 
  Country: None (occurrence: None)
  Receive Date: 20081216
  Receipt Date: 20081208
  Transmission Date: 20090506
  Serious: Yes (Other)
  Sender: FDA-Public Use
  Company Number: 2008AL012368

PATIENT
  Age: 25 Year
  Sex: Female

DRUGS (6)
  1. MIRTAZAPINE [Suspect]
     Dosage: PO
     Route: 048
     Dates: end: 20080709
  2. SYMBICORT [Concomitant]
  3. FEXOFENADINE [Concomitant]
  4. ORLISTAT [Concomitant]
  5. PAROXETINE [Concomitant]
  6. ALCOHOL [Concomitant]

REACTIONS (1)
  - MULTIPLE DRUG OVERDOSE [None]
